FAERS Safety Report 17997203 (Version 2)
Quarter: 2020Q3

REPORT INFORMATION
  Report Type: Spontaneous
  Country: PT (occurrence: PT)
  Receive Date: 20200708
  Receipt Date: 20200724
  Transmission Date: 20201103
  Serious: Yes (Death, Hospitalization)
  Sender: FDA-Public Use
  Company Number: PT-PFIZER INC-2020257249

PATIENT
  Age: 58 Year
  Sex: Female

DRUGS (2)
  1. PREDNISOLONE. [Suspect]
     Active Substance: PREDNISOLONE
     Indication: AUTOIMMUNE HEPATITIS
     Dosage: 1 MG/KG, 1X/DAY
     Route: 065
  2. VORICONAZOLE. [Suspect]
     Active Substance: VORICONAZOLE
     Indication: ASPERGILLUS INFECTION
     Dosage: UNK
     Route: 065

REACTIONS (8)
  - Altered state of consciousness [Fatal]
  - Subarachnoid haemorrhage [Fatal]
  - Aspergillus test [Fatal]
  - Aspergillus infection [Fatal]
  - Infective aneurysm [Fatal]
  - Pyrexia [Fatal]
  - Drug ineffective [Fatal]
  - Ruptured cerebral aneurysm [Fatal]
